FAERS Safety Report 8852154 (Version 4)
Quarter: 2012Q4

REPORT INFORMATION
  Report Type: 
  Country: JP (occurrence: JP)
  Receive Date: 20121022
  Receipt Date: 20121130
  Transmission Date: 20130627
  Serious: No
  Sender: FDA-Public Use
  Company Number: JP-PFIZER INC-2012262863

PATIENT
  Age: 48 Year
  Sex: Male

DRUGS (1)
  1. LYRICA [Suspect]
     Dosage: UNK
     Dates: start: 2012

REACTIONS (5)
  - Oropharyngeal pain [Unknown]
  - Cough [Unknown]
  - Productive cough [Unknown]
  - Epistaxis [Unknown]
  - Nasopharyngitis [Unknown]
